FAERS Safety Report 20052959 (Version 1)
Quarter: 2021Q4

REPORT INFORMATION
  Report Type: Spontaneous
  Country: US (occurrence: None)
  Receive Date: 20211109
  Receipt Date: 20211109
  Transmission Date: 20220303
  Serious: Yes (Other)
  Sender: FDA-Public Use
  Company Number: None

PATIENT
  Age: 52 Year
  Sex: Female
  Weight: 89.1 kg

DRUGS (1)
  1. SOLU-MEDROL [Suspect]
     Active Substance: METHYLPREDNISOLONE SODIUM SUCCINATE
     Indication: Migraine
     Dosage: OTHER FREQUENCY : ONCE - INFREQUENTL;?OTHER ROUTE : VIA IV INFUSION;?
     Route: 050
     Dates: start: 20211103, end: 20211103

REACTIONS (7)
  - Tachycardia [None]
  - Dyspnoea [None]
  - Hypoaesthesia [None]
  - Chest discomfort [None]
  - Visual impairment [None]
  - Confusional state [None]
  - Feeling hot [None]

NARRATIVE: CASE EVENT DATE: 20211103
